FAERS Safety Report 7074056-4 (Version None)
Quarter: 2010Q4

REPORT INFORMATION
  Report Type: 
  Country: None (occurrence: None)
  Receive Date: 20101029
  Receipt Date: 20101020
  Transmission Date: 20110411
  Serious: Yes (Other)
  Sender: FDA-Public Use
  Company Number: CA-JNJFOC-20101006363

PATIENT
  Sex: Male
  Weight: 63 kg

DRUGS (6)
  1. REMICADE [Suspect]
     Indication: CROHN'S DISEASE
     Route: 042
  2. REMICADE [Suspect]
     Route: 042
  3. ASACOL [Concomitant]
  4. ASACOL [Concomitant]
     Dosage: DOSE INCREASED
  5. TYLENOL W/ CODEINE [Concomitant]
  6. PRILOSEC [Concomitant]

REACTIONS (4)
  - DIARRHOEA [None]
  - ENDODONTIC PROCEDURE [None]
  - HAEMORRHOIDS [None]
  - TOOTH INFECTION [None]
